FAERS Safety Report 9789800 (Version 1)
Quarter: 2013Q4

REPORT INFORMATION
  Report Type: Spontaneous
  Country: GB (occurrence: None)
  Receive Date: 20131230
  Receipt Date: 20131230
  Transmission Date: 20140711
  Serious: Yes (Disabling)
  Sender: FDA-Public Use
  Company Number: AUR-APL-2013-10733

PATIENT
  Age: 58 Year
  Sex: Female
  Weight: 102 kg

DRUGS (8)
  1. BISOPROLOL (BISOPROLOL) [Suspect]
     Indication: CARDIOMEGALY
     Route: 048
     Dates: start: 2013
  2. AMLODIPINE (AMLODIPINE) [Concomitant]
  3. ASPIRIN (ACETYLSALICYLIC ACID) [Concomitant]
  4. ATORVASTATIN (ATORVASTATIN) [Concomitant]
  5. FERROUS FUMARATE (FERROUS FUMARATE) [Concomitant]
  6. HUMULIN (HUMAN MIXTARD) [Concomitant]
  7. LEVOTHYROXINE (LEVOTHYROXINE) [Concomitant]
  8. RAMIPRIL (RAMIPRIL) [Concomitant]

REACTIONS (4)
  - Hypersensitivity [None]
  - Urinary tract infection [None]
  - Back pain [None]
  - Liver disorder [None]
